FAERS Safety Report 7153389-7 (Version None)
Quarter: 2010Q4

REPORT INFORMATION
  Report Type: 
  Country: None (occurrence: None)
  Receive Date: 20101213
  Receipt Date: 20101207
  Transmission Date: 20110411
  Serious: Yes (Death, Hospitalization, Other)
  Sender: FDA-Public Use
  Company Number: PHHY2010ZA83230

PATIENT
  Sex: Female

DRUGS (3)
  1. GLEEVEC [Suspect]
     Indication: CHRONIC MYELOID LEUKAEMIA
     Dosage: 400 MG ONCE DAILY
     Dates: start: 20080808
  2. GLEEVEC [Suspect]
     Dosage: 600 MG ONCE DAILY
     Dates: start: 20090929
  3. GLEEVEC [Suspect]
     Dosage: 800 MG ONCE DAILY
     Dates: start: 20100215

REACTIONS (7)
  - DRUG INEFFECTIVE [None]
  - GENE MUTATION IDENTIFICATION TEST POSITIVE [None]
  - HAEMOGLOBIN DECREASED [None]
  - NEUTROPENIA [None]
  - PLATELET COUNT INCREASED [None]
  - SEPTIC SHOCK [None]
  - TREATMENT NONCOMPLIANCE [None]
